FAERS Safety Report 10111027 (Version 2)
Quarter: 2014Q2

REPORT INFORMATION
  Report Type: Spontaneous
  Country: CA (occurrence: CA)
  Receive Date: 20140425
  Receipt Date: 20140425
  Transmission Date: 20141212
  Serious: Yes (Hospitalization)
  Sender: FDA-Public Use
  Company Number: CA-BAXTER-2014BAX017523

PATIENT
  Age: 54 Year
  Sex: Female

DRUGS (2)
  1. DIANEAL PD4 SOLUTION WITH 1.5% DEXTROSE AND 2.5 MEQ/L CALCIUM [Suspect]
     Indication: RENAL DISORDER
     Route: 033
  2. EXTRANEAL [Suspect]
     Indication: RENAL DISORDER
     Route: 033

REACTIONS (4)
  - Animal bite [Recovered/Resolved]
  - Contusion [Recovered/Resolved]
  - Ligament sprain [Recovered/Resolved]
  - Breast injury [Recovered/Resolved]
